FAERS Safety Report 9005423 (Version 4)
Quarter: 2013Q1

REPORT INFORMATION
  Report Type: Report from Study
  Country: US (occurrence: US)
  Receive Date: 20130108
  Receipt Date: 20130307
  Transmission Date: 20140127
  Serious: Yes (Death, Hospitalization, Disabling)
  Sender: FDA-Public Use
  Company Number: US-ACTELION-A-NJ2012-73898

PATIENT
  Age: 88 Year
  Sex: Female

DRUGS (1)
  1. TRACLEER [Suspect]
     Indication: PULMONARY ARTERIAL HYPERTENSION
     Dosage: UNK
     Route: 048
     Dates: start: 20120928, end: 20130213

REACTIONS (4)
  - Pneumonia [Fatal]
  - Pulmonary oedema [Recovering/Resolving]
  - Dehydration [Recovering/Resolving]
  - Dyspnoea [Recovering/Resolving]
